FAERS Safety Report 10071507 (Version 1)
Quarter: 2014Q2

REPORT INFORMATION
  Report Type: Report from Study
  Country: BH (occurrence: BH)
  Receive Date: 20140410
  Receipt Date: 20140410
  Transmission Date: 20141212
  Serious: Yes (Death, Other)
  Sender: FDA-Public Use
  Company Number: BH-BAXTER-2014BAX017214

PATIENT
  Sex: 0

DRUGS (1)
  1. KIOVIG 100MG/ML - 10G/100ML [Suspect]
     Indication: RENAL TRANSPLANT
     Route: 042

REACTIONS (1)
  - Skin angiosarcoma [Fatal]
